FAERS Safety Report 16345907 (Version 2)
Quarter: 2019Q3

REPORT INFORMATION
  Report Type: Report from Study
  Country: ZA (occurrence: ZA)
  Receive Date: 20190523
  Receipt Date: 20190703
  Transmission Date: 20191004
  Serious: Yes (Hospitalization)
  Sender: FDA-Public Use
  Company Number: ZA-VIIV HEALTHCARE LIMITED-ZA2019GSK089803

PATIENT
  Age: 33 Year
  Sex: Female
  Weight: 81.6 kg

DRUGS (2)
  1. EMTRICITABINE+TENOFOVIR ALAFENAMIDE [Suspect]
     Active Substance: EMTRICITABINE\TENOFOVIR ALAFENAMIDE FUMARATE
     Indication: HIV INFECTION
     Dosage: 300/25 MG, QD
     Route: 048
     Dates: start: 20190205
  2. DOLUTEGRAVIR [Suspect]
     Active Substance: DOLUTEGRAVIR
     Indication: HIV INFECTION
     Dosage: 50 MG, QD
     Route: 048
     Dates: start: 20190205

REACTIONS (2)
  - Complication of delivery [Recovered/Resolved]
  - Post procedural complication [Recovered/Resolved]

NARRATIVE: CASE EVENT DATE: 20190511
